FAERS Safety Report 11886678 (Version 1)
Quarter: 2016Q1

REPORT INFORMATION
  Report Type: Spontaneous
  Country: US (occurrence: US)
  Receive Date: 20160104
  Receipt Date: 20160104
  Transmission Date: 20160526
  Serious: Yes (Other)
  Sender: FDA-Public Use
  Company Number: US-BAYER-2016-000834

PATIENT
  Age: 29 Year
  Sex: Female
  Weight: 86.2 kg

DRUGS (1)
  1. YAZ [Suspect]
     Active Substance: DROSPIRENONE\ETHINYL ESTRADIOL
     Route: 048

REACTIONS (2)
  - Embolism arterial [None]
  - Cerebellar infarction [None]

NARRATIVE: CASE EVENT DATE: 20121206
